FAERS Safety Report 12256676 (Version 1)
Quarter: 2016Q2

REPORT INFORMATION
  Report Type: Spontaneous
  Country: US (occurrence: None)
  Receive Date: 20160411
  Receipt Date: 20160411
  Transmission Date: 20160815
  Serious: No
  Sender: FDA-Public Use
  Company Number: None

PATIENT
  Sex: Female

DRUGS (1)
  1. SUMATRIPTAN NASAL SPRAY SD LS - 20MG SANDOZ [Suspect]
     Active Substance: SUMATRIPTAN
     Indication: MIGRAINE
     Dosage: 20MG PRN/AS NEEDED OTHER
     Dates: start: 201602

REACTIONS (4)
  - No therapeutic response [None]
  - Device malfunction [None]
  - Incorrect dose administered by device [None]
  - Product quality issue [None]

NARRATIVE: CASE EVENT DATE: 20160331
